FAERS Safety Report 4755574-8 (Version None)
Quarter: 2005Q3

REPORT INFORMATION
  Report Type: 
  Country: None (occurrence: None)
  Receive Date: 20050830
  Receipt Date: 20050520
  Transmission Date: 20060218
  Serious: No
  Sender: FDA-Public Use
  Company Number: US-BRISTOL-MYERS SQUIBB COMPANY-12976916

PATIENT
  Age: 14 Year
  Sex: Male
  Weight: 46 kg

DRUGS (2)
  1. ABILIFY [Suspect]
     Indication: DISTURBANCE IN ATTENTION
     Route: 048
     Dates: start: 20050511
  2. LEVOXYL [Concomitant]

REACTIONS (3)
  - DIARRHOEA [None]
  - SOMNOLENCE [None]
  - WEIGHT DECREASED [None]
